FAERS Safety Report 13818992 (Version 2)
Quarter: 2018Q1

REPORT INFORMATION
  Report Type: Report from Study
  Country: US (occurrence: US)
  Receive Date: 20170731
  Receipt Date: 20180201
  Transmission Date: 20180508
  Serious: No
  Sender: FDA-Public Use
  Company Number: US-EXELIXIS-CABO-17009013

PATIENT
  Age: 40 Year
  Sex: Male
  Weight: 104.76 kg

DRUGS (12)
  1. DOCUSATE SODIUM. [Concomitant]
     Active Substance: DOCUSATE SODIUM
  2. NICOTINE STEP 2 [Concomitant]
  3. CLINDAMYCIN. [Concomitant]
     Active Substance: CLINDAMYCIN
  4. NOVOLOG [Concomitant]
     Active Substance: INSULIN ASPART
  5. CABOMETYX [Suspect]
     Active Substance: CABOZANTINIB S-MALATE
     Indication: RENAL CANCER
     Dosage: 60 MG, QD
     Route: 048
     Dates: start: 20170408, end: 201705
  6. MORPHINE SULFATE. [Concomitant]
     Active Substance: MORPHINE SULFATE
  7. RED YEAST RICE WITH PLANT STEROLS [Concomitant]
  8. ROSUVASTATIN CALCIUM. [Concomitant]
     Active Substance: ROSUVASTATIN CALCIUM
  9. OMEPRAZOLE. [Concomitant]
     Active Substance: OMEPRAZOLE
  10. PREDNISONE. [Concomitant]
     Active Substance: PREDNISONE
  11. FENOFIBRATE. [Concomitant]
     Active Substance: FENOFIBRATE
  12. FLAXSEED [Concomitant]
     Active Substance: FLAX SEED

REACTIONS (2)
  - Wound [Unknown]
  - Adverse drug reaction [Unknown]

NARRATIVE: CASE EVENT DATE: 201705
